FAERS Safety Report 4570608-1 (Version None)
Quarter: 2005Q1

REPORT INFORMATION
  Report Type: 
  Country: None (occurrence: None)
  Receive Date: 20050204
  Receipt Date: 20050125
  Transmission Date: 20050727
  Serious: Yes (Hospitalization)
  Sender: FDA-Public Use
  Company Number: GB-GLAXOSMITHKLINE-B0365867A

PATIENT
  Age: 56 Year
  Sex: Female
  Weight: 71.6 kg

DRUGS (5)
  1. ZYBAN [Suspect]
     Dosage: 150MG PER DAY
     Route: 048
     Dates: start: 20041214, end: 20050113
  2. VAGIFEM [Concomitant]
     Route: 065
     Dates: start: 20050107
  3. COMBIVENT [Concomitant]
     Route: 065
     Dates: start: 20040623
  4. WARFARIN SODIUM [Concomitant]
     Route: 065
     Dates: start: 20050117
  5. ESTRIOL [Concomitant]
     Route: 065
     Dates: end: 20041201

REACTIONS (4)
  - ATRIAL FIBRILLATION [None]
  - DYSPNOEA [None]
  - JOINT SWELLING [None]
  - TACHYCARDIA [None]
